FAERS Safety Report 26142324 (Version 1)
Quarter: 2025Q4

REPORT INFORMATION
  Report Type: Spontaneous
  Country: EG (occurrence: EG)
  Receive Date: 20251210
  Receipt Date: 20251210
  Transmission Date: 20260118
  Serious: Yes (Hospitalization, Other)
  Sender: HIKMA
  Company Number: EG-HIKMA PHARMACEUTICALS USA INC.-EG-H14001-25-12807

PATIENT
  Age: 68 Year
  Sex: Female
  Weight: 50 kg

DRUGS (8)
  1. DOXORUBICIN [Suspect]
     Active Substance: DOXORUBICIN
     Indication: Product used for unknown indication
     Dosage: 80 MG (OVER 20 MINUTES)
     Route: 042
     Dates: start: 20251025
  2. CYCLOPHOSPHAMIDE [Suspect]
     Active Substance: CYCLOPHOSPHAMIDE
     Indication: Product used for unknown indication
     Dosage: 1200 MG (OVER 1 HOUR)
     Route: 042
  3. PREDNISOLONE [Suspect]
     Active Substance: PREDNISOLONE
     Indication: Product used for unknown indication
     Dosage: 20 MG, QD (4 TABLETS ORALLY PER DAY IN THE MORNING WITH FOOD FROM DAY 1 TO 5)
     Route: 048
     Dates: start: 20251025
  4. RITUXIMAB [Suspect]
     Active Substance: RITUXIMAB
     Dosage: 500 MG (90 MINUTES)
     Route: 042
     Dates: start: 20251025
  5. RITUXIMAB [Suspect]
     Active Substance: RITUXIMAB
     Indication: Product used for unknown indication
     Dosage: 100 MG (60 MINUTES)
     Route: 042
     Dates: start: 20251025
  6. VINCRISTINE SULFATE [Suspect]
     Active Substance: VINCRISTINE SULFATE
     Indication: Product used for unknown indication
     Dosage: 2 MG (OVER 15 MINUTES)
     Route: 042
     Dates: start: 20251025
  7. DEXANOCORTEN [Concomitant]
     Indication: Chemotherapy side effect prophylaxis
     Dosage: UNKNOWN (30 MINUTES)
     Route: 041
  8. EM EX [Concomitant]
     Indication: Chemotherapy side effect prophylaxis
     Dosage: UNKNOWN (OVER 30 MINUTES)
     Route: 041

REACTIONS (7)
  - Febrile neutropenia [Not Recovered/Not Resolved]
  - Leukopenia [Not Recovered/Not Resolved]
  - Thrombocytopenia [Not Recovered/Not Resolved]
  - General physical health deterioration [Recovering/Resolving]
  - Cough [Recovering/Resolving]
  - Vomiting [Recovering/Resolving]
  - Pyrexia [Recovering/Resolving]

NARRATIVE: CASE EVENT DATE: 20251101
